FAERS Safety Report 8503548-3 (Version None)
Quarter: 2012Q3

REPORT INFORMATION
  Report Type: 
  Country: None (occurrence: None)
  Receive Date: 20120711
  Receipt Date: 20120626
  Transmission Date: 20120928
  Serious: No
  Sender: FDA-Public Use
  Company Number: US-ASTRAZENECA-2012SE43361

PATIENT
  Age: 30 Year
  Sex: Male

DRUGS (2)
  1. SEROQUEL [Suspect]
     Indication: BIPOLAR DISORDER
     Route: 048
  2. SEROQUEL [Suspect]
     Indication: MANIA
     Route: 048

REACTIONS (8)
  - ABNORMAL BEHAVIOUR [None]
  - DRUG WITHDRAWAL SYNDROME [None]
  - ADVERSE EVENT [None]
  - ANXIETY [None]
  - MANIA [None]
  - ACTIVITIES OF DAILY LIVING IMPAIRED [None]
  - INSOMNIA [None]
  - DRUG DOSE OMISSION [None]
